FAERS Safety Report 13841903 (Version 4)
Quarter: 2020Q1

REPORT INFORMATION
  Report Type: Report from Study
  Country: US (occurrence: US)
  Receive Date: 20170807
  Receipt Date: 20200109
  Transmission Date: 20200409
  Serious: Yes (Other)
  Sender: FDA-Public Use
  Company Number: US-AMGEN-USASL2017052656

PATIENT
  Age: 71 Year
  Sex: Male

DRUGS (2)
  1. NPLATE [Suspect]
     Active Substance: ROMIPLOSTIM
     Indication: IMMUNE THROMBOCYTOPENIC PURPURA
     Dosage: UNK, QWK
     Route: 065
  2. WARFARIN [Concomitant]
     Active Substance: WARFARIN
     Dosage: UNK

REACTIONS (8)
  - Neuropathy peripheral [Recovering/Resolving]
  - Somnolence [Unknown]
  - Fatigue [Unknown]
  - Dizziness [Unknown]
  - Herpes zoster [Unknown]
  - Seasonal allergy [Recovered/Resolved]
  - Pollakiuria [Unknown]
  - Pain [Unknown]

NARRATIVE: CASE EVENT DATE: 2016
